FAERS Safety Report 4330258-9 (Version None)
Quarter: 2004Q2

REPORT INFORMATION
  Report Type: 
  Country: None (occurrence: None)
  Receive Date: 20040401
  Receipt Date: 20040319
  Transmission Date: 20050107
  Serious: Yes (Other)
  Sender: FDA-Public Use
  Company Number: HQWYE172207JAN04

PATIENT
  Sex: Female

DRUGS (2)
  1. EFFEXOR XR [Suspect]
     Dosage: 150 MG, ORAL
     Route: 048
     Dates: start: 20020101, end: 20020101
  2. AMERGE [Suspect]
     Dosage: 0.5 TABLET 2 X PER 1 DAY, ORAL
     Route: 048
     Dates: start: 20020101, end: 20020101

REACTIONS (6)
  - DRUG INTERACTION [None]
  - DRUG WITHDRAWAL SYNDROME [None]
  - INFECTIOUS MONONUCLEOSIS [None]
  - NEUTROPENIA [None]
  - SEROTONIN SYNDROME [None]
  - VIRAL INFECTION [None]
